FAERS Safety Report 4774834-8 (Version None)
Quarter: 2005Q3

REPORT INFORMATION
  Report Type: 
  Country: None (occurrence: None)
  Receive Date: 20050921
  Receipt Date: 20050913
  Transmission Date: 20060218
  Serious: Yes (Death, Hospitalization)
  Sender: FDA-Public Use
  Company Number: 200513030FR

PATIENT
  Age: 86 Year
  Sex: Female
  Weight: 50 kg

DRUGS (5)
  1. LASILIX [Suspect]
     Route: 048
     Dates: end: 20050613
  2. PREVISCAN [Suspect]
     Route: 048
     Dates: end: 20050613
  3. CARDENSIEL [Concomitant]
     Route: 048
     Dates: end: 20050613
  4. COVERSYL [Concomitant]
     Route: 048
     Dates: end: 20050613
  5. DIGOXINE NATIVELLE [Concomitant]
     Route: 048
     Dates: end: 20050613

REACTIONS (2)
  - CEREBRAL HAEMORRHAGE [None]
  - RESPIRATORY TRACT CONGESTION [None]
